FAERS Safety Report 9366382 (Version 1)
Quarter: 2013Q2

REPORT INFORMATION
  Report Type: Spontaneous
  Country: US (occurrence: US)
  Receive Date: 20130625
  Receipt Date: 20130625
  Transmission Date: 20140414
  Serious: No
  Sender: FDA-Public Use
  Company Number: US-GLAXOSMITHKLINE-A1018278A

PATIENT
  Age: 7 Year
  Sex: Male

DRUGS (3)
  1. VERAMYST [Suspect]
     Indication: RHINITIS ALLERGIC
     Dosage: 2SPR PER DAY
     Route: 045
     Dates: start: 20130228
  2. ZYRTEC [Concomitant]
  3. SINGULAIR [Concomitant]

REACTIONS (3)
  - Sunburn [Not Recovered/Not Resolved]
  - Sunburn [Not Recovered/Not Resolved]
  - Sunburn [Not Recovered/Not Resolved]
